FAERS Safety Report 9511770 (Version 1)
Quarter: 2013Q1

REPORT INFORMATION
  Report Type: Spontaneous
  Country: US (occurrence: None)
  Receive Date: 20130305
  Receipt Date: 20130305
  Transmission Date: 20140127
  Serious: Yes (Hospitalization, Disabling, Other)
  Sender: FDA-Public Use
  Company Number: 163-21880-12103501

PATIENT
  Age: 77 Year
  Sex: Female
  Weight: 65.32 kg

DRUGS (9)
  1. REVLIMID [Suspect]
     Indication: PLASMA CELL MYELOMA
     Dosage: 25 MG, 1 IN 1 D, PO
     Route: 048
     Dates: start: 201209
  2. ASPIRIN (ACETYLSALICYLIC ACID) (UNKNOWN) (ACETYLSALICYLIC ACID) [Concomitant]
  3. CEPODOXIME (CEFPODOXIME PROXETIL) (UNKNOWN) [Concomitant]
  4. PLAVIX (CLOPIDOGREL SULFATE) (UNKNOWN) [Concomitant]
  5. LASIX (FUROSEMIDE) (UNKNOWN) [Concomitant]
  6. GLUCOTROL (GLIPIZIDE) (UNKNOWN) [Concomitant]
  7. METFORMIN (METFORMIN) (UNKNOWN) [Concomitant]
  8. NORVASC (AMLODIPINE BESILATE) (UNKNOWN) [Concomitant]
  9. RAMIPRIL (RAMIPRIL) (UNKNOWN) [Concomitant]

REACTIONS (1)
  - Pneumonia [None]
